FAERS Safety Report 24330188 (Version 2)
Quarter: 2024Q4

REPORT INFORMATION
  Report Type: Spontaneous
  Country: JP (occurrence: JP)
  Receive Date: 20240917
  Receipt Date: 20241219
  Transmission Date: 20250114
  Serious: Yes (Hospitalization, Other)
  Sender: AMGEN
  Company Number: JP-Vifor (International) Inc.-VIT-2024-00825

PATIENT
  Age: 74 Year
  Sex: Male
  Weight: 51 kg

DRUGS (14)
  1. TAVNEOS [Suspect]
     Active Substance: AVACOPAN
     Indication: Microscopic polyangiitis
     Dosage: 10,MG,BID
     Route: 048
     Dates: start: 20230612, end: 20230612
  2. TAVNEOS [Suspect]
     Active Substance: AVACOPAN
     Dosage: 30,MG,BID
     Route: 048
     Dates: start: 20230613, end: 20230626
  3. TAVNEOS [Suspect]
     Active Substance: AVACOPAN
     Dosage: 10,MG,BID
     Route: 048
     Dates: start: 20231002
  4. PREDNISOLONE [Suspect]
     Active Substance: PREDNISOLONE
     Indication: Microscopic polyangiitis
     Dosage: PERORAL MEDICINE
     Route: 048
     Dates: start: 20230612, end: 20230618
  5. PREDNISOLONE [Suspect]
     Active Substance: PREDNISOLONE
     Dosage: PERORAL MEDICINE
     Route: 048
     Dates: start: 20230619, end: 20230625
  6. PREDNISOLONE [Suspect]
     Active Substance: PREDNISOLONE
     Dosage: PERORAL MEDICINE
     Route: 048
     Dates: start: 20230626, end: 20230723
  7. PREDNISOLONE [Suspect]
     Active Substance: PREDNISOLONE
     Dosage: PERORAL MEDICINE
     Route: 048
     Dates: start: 20230724, end: 20231001
  8. PREDNISOLONE [Suspect]
     Active Substance: PREDNISOLONE
     Dosage: PERORAL MEDICINE
     Route: 048
     Dates: start: 20231002, end: 20231203
  9. PREDNISOLONE [Suspect]
     Active Substance: PREDNISOLONE
     Dosage: PERORAL MEDICINE
     Route: 048
     Dates: start: 20231204
  10. CHLORPROMAZINE [Suspect]
     Active Substance: CHLORPROMAZINE
     Indication: Substance-induced psychotic disorder
     Dosage: UNK,UNK,UNK
     Dates: start: 2023
  11. RITUXIMAB [Concomitant]
     Active Substance: RITUXIMAB
     Indication: Microscopic polyangiitis
     Dosage: 600,MG,UNK
     Route: 040
     Dates: start: 20230614, end: 20230614
  12. RITUXIMAB [Concomitant]
     Active Substance: RITUXIMAB
     Dosage: 600,MG,UNK
     Route: 040
     Dates: start: 20230621, end: 20230621
  13. SULFAMETHOXAZOLE\TRIMETHOPRIM [Concomitant]
     Active Substance: SULFAMETHOXAZOLE\TRIMETHOPRIM
     Indication: Antifungal prophylaxis
     Dosage: PERORAL MEDICINE
     Route: 048
  14. SULFAMETHOXAZOLE\TRIMETHOPRIM [Concomitant]
     Active Substance: SULFAMETHOXAZOLE\TRIMETHOPRIM
     Indication: Antifungal prophylaxis

REACTIONS (3)
  - Hepatic function abnormal [Recovered/Resolved]
  - Substance-induced psychotic disorder [Recovered/Resolved]
  - Underdose [Unknown]

NARRATIVE: CASE EVENT DATE: 20230612
